FAERS Safety Report 7236296-0 (Version None)
Quarter: 2010Q4

REPORT INFORMATION
  Report Type: 
  Country: None (occurrence: None)
  Receive Date: 20101130
  Receipt Date: 20091105
  Transmission Date: 20110411
  Serious: No
  Sender: FDA-Public Use
  Company Number: APP200900754

PATIENT
  Age: 39 Year
  Sex: Female

DRUGS (2)
  1. XYLOCAINE [Suspect]
     Indication: PRODUCT USED FOR UNKNOWN INDICATION
     Dosage: ONCE
     Dates: start: 20091029, end: 20091029
  2. DEPO-MEDROL [Concomitant]

REACTIONS (2)
  - DYSPNOEA [None]
  - URTICARIA [None]
